FAERS Safety Report 4775375-4 (Version None)
Quarter: 2005Q3

REPORT INFORMATION
  Report Type: 
  Country: None (occurrence: None)
  Receive Date: 20050920
  Receipt Date: 20050908
  Transmission Date: 20060218
  Serious: Yes (Life-Threatening, Hospitalization)
  Sender: FDA-Public Use
  Company Number: 200511802BWH

PATIENT
  Age: 60 Year
  Sex: Male
  Weight: 97.5234 kg

DRUGS (25)
  1. APROTININ [Suspect]
     Indication: HIP ARTHROPLASTY
     Dosage: INTRAVENOUS
     Route: 042
     Dates: start: 20050822
  2. LIPITOR [Concomitant]
  3. ASPIRIN [Concomitant]
  4. HYDROCHLOROTHIAZIDE [Concomitant]
  5. POTASSIUM CHLORIDE [Concomitant]
  6. GLUCOSAMINE HYDROCHLORIDE [Concomitant]
  7. CHONDROITIN SULFATE [Concomitant]
  8. TRAMADOL [Concomitant]
  9. MULTI-VITAMIN [Concomitant]
  10. ATENOLOL [Concomitant]
  11. ANCEF [Concomitant]
  12. COLACE [Concomitant]
  13. ARIXTRA [Concomitant]
  14. POTASSIUM [Concomitant]
  15. PROTONIX [Concomitant]
  16. SODIUM CHLORIDE [Concomitant]
  17. ACETAMINOPHEN AND OXYCODONE HCL [Concomitant]
  18. ANZEMET [Concomitant]
  19. TUMS [Concomitant]
  20. INAPSINE [Concomitant]
  21. MAGNESIUM HYDROXIDE TAB [Concomitant]
  22. MORPHINE [Concomitant]
  23. COMPAZINE [Concomitant]
  24. REGLAN [Concomitant]
  25. ACETAMINOPHEN AND OXYCODONE HCL [Concomitant]

REACTIONS (11)
  - ACQUIRED DIAPHRAGMATIC EVENTRATION [None]
  - GASTROINTESTINAL INFLAMMATION [None]
  - GASTROOESOPHAGEAL REFLUX DISEASE [None]
  - HYPOKALAEMIA [None]
  - ILEUS PARALYTIC [None]
  - INTESTINAL DILATATION [None]
  - INTESTINAL ISCHAEMIA [None]
  - PLEURAL EFFUSION [None]
  - POSTOPERATIVE ILEUS [None]
  - PROCEDURAL PAIN [None]
  - THERAPY NON-RESPONDER [None]
